FAERS Safety Report 5812654-3 (Version None)
Quarter: 2008Q3

REPORT INFORMATION
  Report Type: 
  Country: None (occurrence: None)
  Receive Date: 20080711
  Receipt Date: 20080703
  Transmission Date: 20090109
  Serious: Yes (Death, Hospitalization)
  Sender: FDA-Public Use
  Company Number: WAES 0807USA00703

PATIENT
  Age: 60 Year
  Sex: Female

DRUGS (1)
  1. DECADRON [Suspect]
     Dosage: 4 MG/BID/PO
     Route: 048

REACTIONS (4)
  - BLOOD GLUCOSE INCREASED [None]
  - MUCORMYCOSIS [None]
  - NO THERAPEUTIC RESPONSE [None]
  - SOFT TISSUE NECROSIS [None]
